FAERS Safety Report 24719805 (Version 2)
Quarter: 2025Q3

REPORT INFORMATION
  Report Type: Report from Study
  Country: ZA (occurrence: ZA)
  Receive Date: 20241211
  Receipt Date: 20250809
  Transmission Date: 20251020
  Serious: Yes (Hospitalization, Other)
  Sender: ALEXION PHARMACEUTICALS
  Company Number: ZA-ASTRAZENECA-202412SSA005188ZA

PATIENT
  Age: 86 Year
  Sex: Female

DRUGS (7)
  1. DAPAGLIFLOZIN [Suspect]
     Active Substance: DAPAGLIFLOZIN
     Indication: Diabetes mellitus
     Dosage: 10 MILLIGRAM, QD
  2. FUROSEMIDE [Concomitant]
     Active Substance: FUROSEMIDE
     Indication: Hypertension
     Dosage: 40 MILLIGRAM, QD
  3. Spiractin [Concomitant]
     Indication: Hypertension
     Dosage: 25 MILLIGRAM, QD
  4. POTASSIUM CHLORIDE [Concomitant]
     Active Substance: POTASSIUM CHLORIDE
     Indication: Hypokalaemia
     Dosage: 600 MILLIGRAM, BID
  5. BISOPROLOL [Concomitant]
     Active Substance: BISOPROLOL
     Indication: Hypertension
     Dosage: 2.5 MILLIGRAM, QD
  6. OCUVITE [Concomitant]
     Active Substance: VITAMINS
     Indication: Eye disorder
     Dosage: UNK, QD
  7. Ocuvite Complete [Concomitant]
     Indication: Eye disorder
     Dosage: UNK, QD

REACTIONS (6)
  - Multiple fractures [Unknown]
  - Malaise [Unknown]
  - Rib fracture [Unknown]
  - Hypersensitivity [Unknown]
  - Mobility decreased [Unknown]
  - Fall [Unknown]
